FAERS Safety Report 17766214 (Version 1)
Quarter: 2020Q2

REPORT INFORMATION
  Report Type: Report from Study
  Country: BE (occurrence: BE)
  Receive Date: 20200511
  Receipt Date: 20200511
  Transmission Date: 20200714
  Serious: Yes (Hospitalization, Other)
  Sender: FDA-Public Use
  Company Number: BE-JNJFOC-20191110078

PATIENT
  Age: 52 Year
  Sex: Female

DRUGS (12)
  1. LIORESAL [Concomitant]
     Active Substance: BACLOFEN
     Indication: FACIAL PAIN
     Route: 065
  2. EMCONCOR [Concomitant]
     Active Substance: BISOPROLOL FUMARATE
     Indication: PRODUCT USED FOR UNKNOWN INDICATION
     Route: 065
  3. TEGRETOL [Suspect]
     Active Substance: CARBAMAZEPINE
     Indication: FACIAL PAIN
     Route: 065
  4. MORPHINE [Suspect]
     Active Substance: MORPHINE
     Indication: FACIAL PAIN
     Route: 065
  5. PANTOMED [Concomitant]
     Indication: PRODUCT USED FOR UNKNOWN INDICATION
     Dosage: 1 CO AT MORNING AND NIGHT
     Route: 065
  6. TRADONAL [Concomitant]
     Active Substance: TRAMADOL HYDROCHLORIDE
     Indication: PRODUCT USED FOR UNKNOWN INDICATION
     Route: 065
  7. ZOCOR [Concomitant]
     Active Substance: SIMVASTATIN
     Indication: PRODUCT USED FOR UNKNOWN INDICATION
     Route: 065
  8. AMLOR [Concomitant]
     Active Substance: AMLODIPINE BESYLATE
     Indication: PRODUCT USED FOR UNKNOWN INDICATION
     Route: 065
  9. DIPIDOLOR [Suspect]
     Active Substance: PIRITRAMIDE
     Indication: FACIAL PAIN
     Route: 065
  10. REDOMEX [Suspect]
     Active Substance: AMITRIPTYLINE HYDROCHLORIDE
     Indication: FACIAL PAIN
     Dosage: 1CO TIME INTERVAL: 0.33 DAYS;
     Route: 065
     Dates: start: 201711, end: 201711
  11. TRAMADOL HYDROCHLORIDE. [Suspect]
     Active Substance: TRAMADOL HYDROCHLORIDE
     Indication: FACIAL PAIN
     Route: 065
  12. REBIF [Suspect]
     Active Substance: INTERFERON BETA-1A
     Indication: MULTIPLE SCLEROSIS
     Dosage: TIME INTERVAL: 0.33 WEEKS;
     Route: 058
     Dates: start: 20081103

REACTIONS (17)
  - Social problem [Unknown]
  - Disturbance in attention [Not Recovered/Not Resolved]
  - Blood cholesterol increased [Unknown]
  - Injection site bruising [Unknown]
  - Dry mouth [Not Recovered/Not Resolved]
  - Choking [Unknown]
  - Injection site pain [Recovering/Resolving]
  - Influenza like illness [Not Recovered/Not Resolved]
  - Somnolence [Unknown]
  - Trigeminal neuralgia [Recovering/Resolving]
  - Memory impairment [Not Recovered/Not Resolved]
  - Injection site erythema [Recovering/Resolving]
  - Neurovascular conflict [Recovering/Resolving]
  - Balance disorder [Not Recovered/Not Resolved]
  - Multiple sclerosis [Unknown]
  - Hypertension [Not Recovered/Not Resolved]
  - Oesophagitis [Not Recovered/Not Resolved]
